FAERS Safety Report 23408116 (Version 2)
Quarter: 2024Q3

REPORT INFORMATION
  Report Type: Spontaneous
  Country: JP (occurrence: JP)
  Receive Date: 20240117
  Receipt Date: 20240917
  Transmission Date: 20241017
  Serious: Yes (Other)
  Sender: GENMAB
  Company Number: JP-GENMAB-2023-02390AA

PATIENT
  Age: 72 Year
  Sex: Female
  Weight: 40 kg

DRUGS (6)
  1. EPKINLY [Suspect]
     Active Substance: EPCORITAMAB-BYSP
     Indication: Diffuse large B-cell lymphoma
     Dosage: 0.16 MILLIGRAM, SINGLE
     Route: 058
     Dates: start: 20231204, end: 20231204
  2. EPKINLY [Suspect]
     Active Substance: EPCORITAMAB-BYSP
     Dosage: 0.8 MILLIGRAM, SINGLE
     Route: 058
     Dates: start: 20231211, end: 20231211
  3. EPKINLY [Suspect]
     Active Substance: EPCORITAMAB-BYSP
     Dosage: 48 MILLIGRAM, WEEKLY
     Route: 058
     Dates: start: 20231218
  4. ACTEMRA [Suspect]
     Active Substance: TOCILIZUMAB
     Indication: Cytokine release syndrome
     Dosage: 320 MILLIGRAM, SINGLE, FOR CYTOKINE RELEASE SYNDROME (CRS) (ONSET: 09-DEC-2023)
     Route: 041
     Dates: start: 20231209, end: 20231209
  5. ACTEMRA [Suspect]
     Active Substance: TOCILIZUMAB
     Dosage: 320 MILLIGRAM, SINGLE, FOR CYTOKINE RELEASE SYNDROME (CRS) (ONSET: 19-DEC-2023)
     Route: 041
     Dates: start: 20231219, end: 20231219
  6. DECADRON [Concomitant]
     Active Substance: DEXAMETHASONE
     Indication: Prophylaxis
     Dosage: UNK, ON DAY 1, DAY 2, DAY 3 AND DAY 4 OF ADMINISTRATION OF EPKINLY
     Dates: start: 20231204

REACTIONS (3)
  - Pneumatosis intestinalis [Recovering/Resolving]
  - Cytokine release syndrome [Recovered/Resolved]
  - Cytokine release syndrome [Recovered/Resolved]

NARRATIVE: CASE EVENT DATE: 20231209
